FAERS Safety Report 18986189 (Version 3)
Quarter: 2021Q2

REPORT INFORMATION
  Report Type: Spontaneous
  Country: IE (occurrence: IE)
  Receive Date: 20210309
  Receipt Date: 20210503
  Transmission Date: 20210717
  Serious: Yes (Hospitalization, Other)
  Sender: FDA-Public Use
  Company Number: NVSC2021IE046366

PATIENT
  Age: 41 Year
  Sex: Male
  Weight: 100 kg

DRUGS (2)
  1. COSENTYX [Suspect]
     Active Substance: SECUKINUMAB
     Indication: PSORIASIS
     Dosage: 300 MG, QMO
     Route: 058
     Dates: start: 201608
  2. COSENTYX [Suspect]
     Active Substance: SECUKINUMAB
     Dosage: 300 MG, UNKNOWN
     Route: 065
     Dates: start: 201802, end: 20201220

REACTIONS (10)
  - Spinal cord infection [Unknown]
  - Pelvic pain [Unknown]
  - Staphylococcal bacteraemia [Recovered/Resolved]
  - Back pain [Recovered/Resolved]
  - Pyrexia [Recovered/Resolved]
  - C-reactive protein increased [Unknown]
  - Pelvic sepsis [Unknown]
  - Pyomyositis [Recovered/Resolved]
  - Groin pain [Recovered/Resolved]
  - Abdominal abscess [Unknown]

NARRATIVE: CASE EVENT DATE: 20210114
